FAERS Safety Report 20502732 (Version 1)
Quarter: 2022Q1

REPORT INFORMATION
  Report Type: Spontaneous
  Country: CN (occurrence: None)
  Receive Date: 20220222
  Receipt Date: 20220222
  Transmission Date: 20220424
  Serious: Yes (Other)
  Sender: FDA-Public Use
  Company Number: 2022A078384

PATIENT
  Age: 23090 Day
  Sex: Female
  Weight: 43 kg

DRUGS (2)
  1. OSIMERTINIB MESYLATE [Suspect]
     Active Substance: OSIMERTINIB MESYLATE
     Indication: Neoplasm
     Route: 048
     Dates: start: 20211226, end: 20211231
  2. CISPLATIN [Suspect]
     Active Substance: CISPLATIN
     Indication: Neoplasm
     Route: 034
     Dates: start: 20211223, end: 20211223

REACTIONS (1)
  - Myelosuppression [Recovering/Resolving]

NARRATIVE: CASE EVENT DATE: 20211228
